FAERS Safety Report 13910632 (Version 2)
Quarter: 2017Q3

REPORT INFORMATION
  Report Type: Spontaneous
  Country: IT (occurrence: IT)
  Receive Date: 20170828
  Receipt Date: 20170914
  Transmission Date: 20171127
  Serious: Yes (Disabling, Other)
  Sender: FDA-Public Use
  Company Number: IT-MYLANLABS-2017M1052843

PATIENT
  Age: 57 Year
  Sex: Male

DRUGS (2)
  1. PRAMIPEXOLE. [Suspect]
     Active Substance: PRAMIPEXOLE
     Indication: PARKINSON^S DISEASE
     Dosage: 2.1 MG PROLONGED RELEASE
     Route: 065
  2. CARBIDOPA AND LEVODOPA [Concomitant]
     Active Substance: CARBIDOPA\LEVODOPA
     Indication: PARKINSON^S DISEASE
     Dosage: 200/50 MG SUSTAINED RELEASE, THRICE DAILY
     Route: 065

REACTIONS (2)
  - Disability [Recovering/Resolving]
  - Oedema peripheral [Recovering/Resolving]
